FAERS Safety Report 22194303 (Version 1)
Quarter: 2023Q2

REPORT INFORMATION
  Report Type: Other
  Country: US (occurrence: US)
  Receive Date: 20230411
  Receipt Date: 20230411
  Transmission Date: 20230722
  Serious: Yes (Death, Hospitalization)
  Sender: FDA-Public Use
  Company Number: US-ALVOGEN-2023089975

PATIENT
  Age: 21 Year
  Sex: Female

DRUGS (5)
  1. BUPROPION [Suspect]
     Active Substance: BUPROPION
     Indication: Suicide attempt
     Route: 048
  2. LORAZEPAM [Concomitant]
     Active Substance: LORAZEPAM
     Indication: Product used for unknown indication
  3. SULFAMETHOXAZOLE\TRIMETHOPRIM [Concomitant]
     Active Substance: SULFAMETHOXAZOLE\TRIMETHOPRIM
     Indication: Product used for unknown indication
  4. ONDANSETRON [Concomitant]
     Active Substance: ONDANSETRON
     Indication: Product used for unknown indication
  5. FERROUS SULFATE [Concomitant]
     Active Substance: FERROUS SULFATE
     Indication: Product used for unknown indication

REACTIONS (11)
  - Completed suicide [Fatal]
  - Brain injury [Fatal]
  - Hypernatraemia [Fatal]
  - Diabetes insipidus [Fatal]
  - Cardiac arrest [Fatal]
  - Tachycardia [Fatal]
  - Cardiac arrest [Fatal]
  - Respiratory arrest [Fatal]
  - Brain oedema [Fatal]
  - Brain death [Fatal]
  - Seizure [Fatal]
